FAERS Safety Report 17324670 (Version 1)
Quarter: 2020Q1

REPORT INFORMATION
  Report Type: Other
  Country: DE (occurrence: DE)
  Receive Date: 20200127
  Receipt Date: 20200127
  Transmission Date: 20200409
  Serious: Yes (Other)
  Sender: FDA-Public Use
  Company Number: DE-NAVINTA LLC-000083

PATIENT
  Age: 31 Year
  Sex: Male

DRUGS (1)
  1. RIBAVIRIN. [Suspect]
     Active Substance: RIBAVIRIN
     Indication: HEPATITIS E
     Dosage: 200 MG/D

REACTIONS (2)
  - General physical health deterioration [Unknown]
  - Thrombocytopenia [Unknown]
